FAERS Safety Report 6684518-7 (Version None)
Quarter: 2010Q2

REPORT INFORMATION
  Report Type: 
  Country: None (occurrence: None)
  Receive Date: 20100416
  Receipt Date: 20100413
  Transmission Date: 20101027
  Serious: Yes (Death, Hospitalization)
  Sender: FDA-Public Use
  Company Number: CZ-ROCHE-679076

PATIENT
  Sex: Female
  Weight: 76 kg

DRUGS (4)
  1. BEVACIZUMAB [Suspect]
     Indication: NON-SMALL CELL LUNG CANCER
     Dosage: PERMANENTLY DISCONTINUED. FORM: VIAL, LAST DOSE PRIOR TO SAE: 21 DECEMBER 2009
     Route: 042
     Dates: start: 20091118, end: 20100120
  2. GEMCITABINE HCL [Suspect]
     Dosage: FORM: VIAL, FREQUENCY: D1+8 Q3W, PERMANENTLY DISCONTINUED
     Route: 042
     Dates: start: 20091118, end: 20091229
  3. CARBOPLATIN [Suspect]
     Dosage: FORM: VIAL, THERAPY PERMANENTLY DISCONTINUED
     Route: 042
     Dates: start: 20091118, end: 20091221
  4. LOZAP [Concomitant]
     Dates: start: 20000101

REACTIONS (2)
  - PNEUMONIA [None]
  - PULMONARY EMBOLISM [None]
